FAERS Safety Report 6455308-5 (Version None)
Quarter: 2009Q4

REPORT INFORMATION
  Report Type: 
  Country: None (occurrence: None)
  Receive Date: 20091125
  Receipt Date: 20091026
  Transmission Date: 20100525
  Serious: No
  Sender: FDA-Public Use
  Company Number: US-ABBOTT-09P-163-0605733-00

PATIENT
  Sex: Female
  Weight: 55.388 kg

DRUGS (8)
  1. SIMCOR [Suspect]
     Indication: BLOOD TRIGLYCERIDES INCREASED
     Dosage: 500/20MG QHS; EATS CRACKERS WITH MEDICATION
     Route: 048
     Dates: start: 20090901
  2. SIMCOR [Suspect]
     Indication: BLOOD CHOLESTEROL INCREASED
  3. CLONAZEPAM [Concomitant]
     Indication: RESTLESS LEGS SYNDROME
     Route: 048
  4. UNKNOWN NERVOUS DROPS [Concomitant]
     Indication: DRUG USE FOR UNKNOWN INDICATION
  5. SINGULAIR [Concomitant]
     Indication: ASTHMA
     Route: 048
  6. FLOVENT [Concomitant]
     Indication: ASTHMA
     Route: 055
  7. NOSE DROPS [Concomitant]
     Indication: HYPERSENSITIVITY
  8. ALEVE [Concomitant]
     Indication: ARTHRITIS

REACTIONS (3)
  - EAR DISCOMFORT [None]
  - HYPOACUSIS [None]
  - SINUSITIS [None]
